FAERS Safety Report 8390536 (Version 2)
Quarter: 2013Q2

REPORT INFORMATION
  Report Type: Spontaneous
  Country: FR (occurrence: FR)
  Receive Date: 20120205
  Receipt Date: 20130507
  Transmission Date: 20140414
  Serious: Yes (Hospitalization)
  Sender: FDA-Public Use
  Company Number: FR-BRISTOL-MYERS SQUIBB COMPANY-16367401

PATIENT
  Age: 83 Year
  Sex: Male

DRUGS (10)
  1. ELISOR [Suspect]
     Indication: DYSLIPIDAEMIA
     Route: 048
     Dates: start: 2008, end: 20110802
  2. AVODART [Suspect]
     Indication: BENIGN PROSTATIC HYPERPLASIA
     Dosage: EVENING,AVODART 0.5 MG
     Route: 048
     Dates: start: 2008, end: 20110802
  3. ALDALIX [Concomitant]
     Dosage: ALDALIX 50/20?1 IN THE MORNING.
  4. DILTIAZEM HCL [Concomitant]
     Dosage: MONOTILDIEM 200 (DILTIAZEM)2/D 1IN THE MORNING AND 1 IN THE EVENING; STARTED BEFORE 2008
  5. DISCOTRINE [Concomitant]
     Dosage: DISCOTRINE 10; 1 PATCH PER DAY; STARTED BEFORE 2008
  6. PLAVIX [Concomitant]
     Dosage: 1 AT NOON,  STARTED BEFORE 2008
  7. ENALAPRIL [Concomitant]
     Dosage: 1 IN THE MORNING; STARTED BEFORE 2008
  8. XATRAL [Concomitant]
     Dosage: 1 IN THE EVENING; STARTED BEFORE 2008
  9. FORLAX [Concomitant]
     Dosage: STARTED BEFORE 2008
  10. SMECTA [Concomitant]
     Dosage: STARTED BEFORE 2008

REACTIONS (4)
  - Eosinophilia [Recovered/Resolved]
  - Diarrhoea [Recovered/Resolved]
  - Renal failure [Recovered/Resolved]
  - Hepatocellular injury [Recovered/Resolved]
